FAERS Safety Report 17458261 (Version 1)
Quarter: 2020Q1

REPORT INFORMATION
  Report Type: Spontaneous
  Country: IT (occurrence: IT)
  Receive Date: 20200225
  Receipt Date: 20200225
  Transmission Date: 20200409
  Serious: Yes (Death)
  Sender: FDA-Public Use
  Company Number: IT-MYLANLABS-2020M1019837

PATIENT
  Age: 20 Year
  Sex: Female
  Weight: 70 kg

DRUGS (5)
  1. LANOXIN [Suspect]
     Active Substance: DIGOXIN
     Indication: ATRIAL FIBRILLATION
     Dosage: 0.06 MILLIGRAM, QD
     Route: 048
  2. LASIX [Suspect]
     Active Substance: FUROSEMIDE
     Indication: CARDIAC FAILURE
     Dosage: 25 MILLIGRAM, QD
     Route: 048
  3. BISOPROLOL [Suspect]
     Active Substance: BISOPROLOL
     Indication: ATRIAL FIBRILLATION
     Dosage: 1.25 MILLIGRAM, QD
     Route: 048
  4. WARFARIN SODIUM. [Concomitant]
     Active Substance: WARFARIN SODIUM
     Indication: ATRIAL FIBRILLATION
     Dosage: UNK
  5. ALDACTONE [Suspect]
     Active Substance: SPIRONOLACTONE
     Indication: CARDIAC FAILURE CHRONIC
     Dosage: 25 MILLIGRAM, QD

REACTIONS (4)
  - Toxicity to various agents [Fatal]
  - Overdose [Fatal]
  - Bradycardia [Fatal]
  - Hyperkalaemia [Fatal]

NARRATIVE: CASE EVENT DATE: 20191225
